FAERS Safety Report 13129674 (Version 2)
Quarter: 2017Q1

REPORT INFORMATION
  Report Type: Spontaneous
  Country: US (occurrence: US)
  Receive Date: 20170119
  Receipt Date: 20170228
  Transmission Date: 20170428
  Serious: No
  Sender: FDA-Public Use
  Company Number: US-PFIZER INC-2017018039

PATIENT
  Age: 58 Year
  Sex: Female

DRUGS (1)
  1. IBRANCE [Suspect]
     Active Substance: PALBOCICLIB
     Dosage: 125 MG, CYCLIC (ONCE A DAY FOR 3WEEKS/21 DAYS THEN 4TH WEEK BREAK)
     Route: 048
     Dates: start: 201611

REACTIONS (5)
  - Pyrexia [Recovered/Resolved]
  - Stress [Unknown]
  - Chills [Recovered/Resolved]
  - White blood cell count decreased [Unknown]
  - Hypertension [Recovering/Resolving]
